FAERS Safety Report 9281666 (Version 2)
Quarter: 2013Q3

REPORT INFORMATION
  Report Type: Spontaneous
  Country: US (occurrence: US)
  Receive Date: 20130509
  Receipt Date: 20130717
  Transmission Date: 20140515
  Serious: Yes (Other)
  Sender: FDA-Public Use
  Company Number: US-009507513-1305USA002399

PATIENT
  Sex: Female

DRUGS (1)
  1. NASONEX [Suspect]

REACTIONS (2)
  - Hypoacusis [Not Recovered/Not Resolved]
  - Product quality issue [Unknown]
